FAERS Safety Report 26175618 (Version 1)
Quarter: 2025Q4

REPORT INFORMATION
  Report Type: Spontaneous
  Country: CN (occurrence: CN)
  Receive Date: 20251218
  Receipt Date: 20251218
  Transmission Date: 20260117
  Serious: Yes (Hospitalization)
  Sender: NOVARTIS
  Company Number: CN-002147023-NVSC2025CN191467

PATIENT
  Age: 77 Year
  Sex: Male
  Weight: 56.5 kg

DRUGS (1)
  1. CARBAMAZEPINE [Suspect]
     Active Substance: CARBAMAZEPINE
     Indication: Trigeminal neuralgia
     Dosage: 400 MG, BID
     Route: 048
     Dates: start: 20251201, end: 20251203

REACTIONS (17)
  - Drug eruption [Unknown]
  - Erythema [Unknown]
  - Pruritus [Unknown]
  - Blister [Unknown]
  - Pustule [Unknown]
  - Rash pruritic [Unknown]
  - Skin erosion [Unknown]
  - Blister rupture [Unknown]
  - Pain of skin [Unknown]
  - Target skin lesion [Unknown]
  - Mucosal erosion [Unknown]
  - Lip oedema [Unknown]
  - Conjunctival hyperaemia [Unknown]
  - Purulent discharge [Unknown]
  - Pyrexia [Unknown]
  - Temperature intolerance [Unknown]
  - Chills [Unknown]

NARRATIVE: CASE EVENT DATE: 20251201
